FAERS Safety Report 15318808 (Version 1)
Quarter: 2018Q3

REPORT INFORMATION
  Report Type: Spontaneous
  Country: US (occurrence: US)
  Receive Date: 20180818
  Receipt Date: 20180818
  Transmission Date: 20181010
  Serious: No
  Sender: FDA-Public Use
  Company Number: None

PATIENT
  Age: 55 Year
  Sex: Female

DRUGS (1)
  1. SIMPONI [Suspect]
     Active Substance: GOLIMUMAB
     Indication: RHEUMATOID ARTHRITIS
     Dosage: OTHER
     Route: 058

REACTIONS (5)
  - Cough [None]
  - Nasopharyngitis [None]
  - Peripheral swelling [None]
  - Wheezing [None]
  - Joint swelling [None]

NARRATIVE: CASE EVENT DATE: 20180805
